FAERS Safety Report 25035064 (Version 1)
Quarter: 2025Q1

REPORT INFORMATION
  Report Type: Spontaneous
  Country: FR (occurrence: FR)
  Receive Date: 20250304
  Receipt Date: 20250304
  Transmission Date: 20250408
  Serious: Yes (Other)
  Sender: ALKEM
  Company Number: FR-ALKEM LABORATORIES LIMITED-FR-ALKEM-2025-01638

PATIENT
  Age: 43 Year
  Sex: Male

DRUGS (10)
  1. MYCOPHENOLATE MOFETIL [Suspect]
     Active Substance: MYCOPHENOLATE MOFETIL
     Indication: Immunosuppressant drug therapy
     Route: 065
  2. MYCOPHENOLATE MOFETIL [Suspect]
     Active Substance: MYCOPHENOLATE MOFETIL
     Route: 065
  3. TACROLIMUS [Suspect]
     Active Substance: TACROLIMUS
     Indication: Immunosuppressant drug therapy
     Route: 065
  4. TACROLIMUS [Suspect]
     Active Substance: TACROLIMUS
     Route: 065
  5. BASILIXIMAB [Suspect]
     Active Substance: BASILIXIMAB
     Indication: Immunosuppressant drug therapy
     Route: 065
  6. HUMAN IMMUNOGLOBULIN G [Suspect]
     Active Substance: HUMAN IMMUNOGLOBULIN G
     Indication: Immunosuppressant drug therapy
     Route: 042
  7. DIDANOSINE [Concomitant]
     Active Substance: DIDANOSINE
     Indication: HIV-2 infection
     Route: 065
  8. LOPINAVIR [Concomitant]
     Active Substance: LOPINAVIR
     Indication: HIV-2 infection
     Route: 065
  9. RITONAVIR [Concomitant]
     Active Substance: RITONAVIR
     Indication: HIV-2 infection
     Route: 065
  10. ZIDOVUDINE [Concomitant]
     Active Substance: ZIDOVUDINE
     Indication: HIV-2 infection
     Route: 065

REACTIONS (11)
  - Toxicity to various agents [Unknown]
  - Acute kidney injury [Unknown]
  - Polyomavirus-associated nephropathy [Unknown]
  - Polyomavirus-associated nephropathy [Unknown]
  - Interstitial lung disease [Unknown]
  - Adenovirus interstitial nephritis [Unknown]
  - Progressive multifocal leukoencephalopathy [Unknown]
  - Cytomegalovirus nephritis [Unknown]
  - Cytomegalovirus myocarditis [Unknown]
  - Transplant dysfunction [Unknown]
  - Enterocolitis viral [Unknown]
